FAERS Safety Report 9542089 (Version 1)
Quarter: 2013Q3

REPORT INFORMATION
  Report Type: Not Available
  Country: GB (occurrence: GB)
  Receive Date: 20130923
  Receipt Date: 20130923
  Transmission Date: 20140515
  Serious: Yes (Other)
  Sender: FDA-Public Use
  Company Number: GB-ASTELLAS-2013EU007963

PATIENT
  Age: 26 Year
  Sex: Female
  Weight: 88.9 kg

DRUGS (3)
  1. VESICARE [Suspect]
     Indication: BLADDER DISORDER
     Dosage: 5 MG, UID/QD
     Route: 048
     Dates: start: 20130107, end: 20130125
  2. NASONEX [Concomitant]
     Dosage: UNK
     Route: 065
  3. PANTOPRAZOLE [Concomitant]
     Dosage: UNK
     Route: 065

REACTIONS (3)
  - Abdominal pain [Recovering/Resolving]
  - Dry mouth [Recovering/Resolving]
  - Palpitations [Recovering/Resolving]
